FAERS Safety Report 7487659-X (Version None)
Quarter: 2011Q2

REPORT INFORMATION
  Report Type: 
  Country: None (occurrence: None)
  Receive Date: 20110518
  Receipt Date: 20091108
  Transmission Date: 20111010
  Serious: Yes (Other)
  Sender: FDA-Public Use
  Company Number: US-BAYER-200938848NA

PATIENT
  Age: 50 Year
  Sex: Female
  Weight: 93.878 kg

DRUGS (16)
  1. TRASYLOL [Suspect]
     Dosage: 200 ML LOADING DOSE
     Route: 042
     Dates: start: 20070821, end: 20070821
  2. LOVENOX [Concomitant]
     Dosage: 90 MG, UNK
     Route: 058
     Dates: start: 20070816
  3. MANNITOL [Concomitant]
     Dosage: 12.5 G, UNK
     Route: 042
     Dates: start: 20070821
  4. TRASYLOL [Suspect]
     Dosage: 50 CC/HOUR INFUSION
     Route: 042
     Dates: start: 20070821, end: 20070821
  5. EPINEPHRINE [Concomitant]
     Dosage: UNK
     Route: 042
     Dates: start: 20070821
  6. TRASYLOL [Suspect]
     Indication: CORONARY ARTERY BYPASS
     Dosage: 1 ML, ONCE, INITIAL TEST DOSE
     Route: 042
     Dates: start: 20070821, end: 20070821
  7. LOPRESSOR [Concomitant]
     Dosage: UNK
     Route: 048
     Dates: start: 19780101
  8. ACETAMINOPHEN [Concomitant]
     Dosage: 1 G, UNK
     Route: 048
     Dates: start: 20070816
  9. HEPARIN [Concomitant]
     Dosage: 5000 U, UNK
     Route: 042
     Dates: start: 20070821
  10. LASIX [Concomitant]
     Dosage: 100 MG, UNK
     Route: 042
     Dates: start: 20070821
  11. NITROGLYCERIN [Concomitant]
     Dosage: VARIED
     Route: 042
     Dates: start: 20070816
  12. KEFZOL [Concomitant]
     Dosage: 2 G, UNK
     Route: 042
     Dates: start: 20070821
  13. ACETYLSALICYLIC ACID SRT [Concomitant]
     Dosage: 325 MG, UNK
     Route: 048
     Dates: start: 20070816
  14. CLONIDINE [Concomitant]
     Dosage: 0.2 MG, UNK
     Route: 048
     Dates: start: 20070817
  15. LASIX [Concomitant]
     Dosage: 50 MG, UNK
     Route: 048
     Dates: start: 20070818
  16. MUCOMYST [Concomitant]
     Indication: CATHETERISATION CARDIAC
     Dosage: 600 MG, UNK
     Route: 048
     Dates: start: 20050817

REACTIONS (9)
  - FEAR [None]
  - RENAL INJURY [None]
  - EMOTIONAL DISTRESS [None]
  - ANXIETY [None]
  - PAIN [None]
  - RENAL IMPAIRMENT [None]
  - RENAL FAILURE [None]
  - STRESS [None]
  - UNEVALUABLE EVENT [None]
